FAERS Safety Report 10696444 (Version 1)
Quarter: 2015Q1

REPORT INFORMATION
  Report Type: Spontaneous
  Country: US (occurrence: US)
  Receive Date: 20150107
  Receipt Date: 20150107
  Transmission Date: 20150721
  Serious: No
  Sender: FDA-Public Use
  Company Number: US-BRISTOL-MYERS SQUIBB COMPANY-21662358

PATIENT
  Sex: Female
  Weight: 58.96 kg

DRUGS (3)
  1. JANUVIA [Concomitant]
     Active Substance: SITAGLIPTIN PHOSPHATE
     Indication: TYPE 2 DIABETES MELLITUS
  2. BYDUREON [Suspect]
     Active Substance: EXENATIDE
     Indication: TYPE 2 DIABETES MELLITUS
     Dosage: ONGOING
     Route: 058
     Dates: start: 20141028
  3. METFORMIN HYDROCHLORIDE. [Concomitant]
     Active Substance: METFORMIN HYDROCHLORIDE
     Indication: TYPE 2 DIABETES MELLITUS

REACTIONS (4)
  - Injection site erythema [Recovered/Resolved]
  - Injection site pruritus [Recovered/Resolved]
  - Depression [Not Recovered/Not Resolved]
  - Injection site nodule [Not Recovered/Not Resolved]

NARRATIVE: CASE EVENT DATE: 2014
